FAERS Safety Report 23825223 (Version 1)
Quarter: 2024Q2

REPORT INFORMATION
  Report Type: Spontaneous
  Country: PL (occurrence: PL)
  Receive Date: 20240507
  Receipt Date: 20240507
  Transmission Date: 20240716
  Serious: Yes (Other)
  Sender: FDA-Public Use
  Company Number: PL-SUN PHARMACEUTICAL INDUSTRIES LTD-2024RR-445070

PATIENT
  Age: 1 Day
  Sex: Male

DRUGS (4)
  1. MEROPENEM [Suspect]
     Active Substance: MEROPENEM
     Indication: Pneumatosis intestinalis
     Dosage: 40 MILLIGRAM, TID
     Route: 040
  2. AMPICILLIN [Suspect]
     Active Substance: AMPICILLIN
     Indication: Pneumatosis intestinalis
     Dosage: UNK
     Route: 065
  3. VANCOMYCIN [Suspect]
     Active Substance: VANCOMYCIN
     Indication: Pneumatosis intestinalis
     Dosage: 10 MILLIGRAM/KILOGRAM
     Route: 040
  4. GENTAMICIN [Suspect]
     Active Substance: GENTAMICIN
     Indication: Pneumatosis intestinalis
     Dosage: UNK
     Route: 065

REACTIONS (1)
  - Condition aggravated [Unknown]
